FAERS Safety Report 5232055-9 (Version None)
Quarter: 2007Q1

REPORT INFORMATION
  Report Type: 
  Country: None (occurrence: None)
  Receive Date: 20070205
  Receipt Date: 20070124
  Transmission Date: 20070707
  Serious: Yes (Other)
  Sender: FDA-Public Use
  Company Number: CHNY2007HU00631

PATIENT
  Age: 37 Year
  Sex: Female

DRUGS (2)
  1. NICOTINE [Suspect]
     Indication: SMOKING CESSATION THERAPY
     Dosage: 21 MG, QD, TRANSDERMAL
     Route: 062
  2. TRI-REGOL (ETHINYLESTRADIOL, LEVONORGESTREL) [Concomitant]

REACTIONS (2)
  - CHEST DISCOMFORT [None]
  - HYPERHIDROSIS [None]
